FAERS Safety Report 25353781 (Version 3)
Quarter: 2025Q3

REPORT INFORMATION
  Report Type: Spontaneous
  Country: US (occurrence: US)
  Receive Date: 20250523
  Receipt Date: 20250711
  Transmission Date: 20251021
  Serious: Yes (Life-Threatening, Other)
  Sender: MYLAN
  Company Number: US-MYLANLABS-2025M1041248

PATIENT
  Age: 30 Year
  Sex: Female
  Weight: 77.11 kg

DRUGS (4)
  1. EPINEPHRINE [Suspect]
     Active Substance: EPINEPHRINE
     Indication: Anaphylactic shock
  2. EPINEPHRINE [Suspect]
     Active Substance: EPINEPHRINE
     Route: 030
  3. EPINEPHRINE [Suspect]
     Active Substance: EPINEPHRINE
     Route: 030
  4. EPINEPHRINE [Suspect]
     Active Substance: EPINEPHRINE

REACTIONS (6)
  - Device failure [Unknown]
  - Injury associated with device [Unknown]
  - Injection site hypoaesthesia [Not Recovered/Not Resolved]
  - Wrong technique in product usage process [Unknown]
  - Drug dose omission by device [Unknown]
  - Embedded device [Unknown]

NARRATIVE: CASE EVENT DATE: 20250511
